FAERS Safety Report 10041708 (Version 3)
Quarter: 2014Q2

REPORT INFORMATION
  Report Type: Report from Study
  Country: NL (occurrence: NL)
  Receive Date: 20140327
  Receipt Date: 20140402
  Transmission Date: 20141212
  Serious: Yes (Other)
  Sender: FDA-Public Use
  Company Number: NL-BAYER-2013-128826

PATIENT
  Age: 35 Year
  Sex: Female

DRUGS (1)
  1. BETAFERON [Suspect]
     Dosage: 250 ?G, QOD

REACTIONS (6)
  - Multiple sclerosis relapse [Unknown]
  - Limb discomfort [Unknown]
  - Muscular weakness [Unknown]
  - Injection site pain [Not Recovered/Not Resolved]
  - Injection site rash [Not Recovered/Not Resolved]
  - Drug ineffective [Unknown]
